FAERS Safety Report 8557403-3 (Version None)
Quarter: 2012Q3

REPORT INFORMATION
  Report Type: 
  Country: None (occurrence: None)
  Receive Date: 20120801
  Receipt Date: 20120725
  Transmission Date: 20120928
  Serious: Yes (Other)
  Sender: FDA-Public Use
  Company Number: US-PFIZER INC-2012151060

PATIENT
  Sex: Female
  Weight: 79.819 kg

DRUGS (9)
  1. MULTI-VITAMINS [Concomitant]
     Dosage: UNK, DAILY
  2. TOVIAZ [Suspect]
     Indication: URINARY INCONTINENCE
     Dosage: 4 MG, UNK
     Route: 048
     Dates: start: 20120501
  3. LIVALO [Concomitant]
     Indication: BLOOD CHOLESTEROL ABNORMAL
     Dosage: 2 MG, DAILY
     Route: 048
  4. BENICAR HCT [Concomitant]
     Indication: HYPERTENSION
     Dosage: 12.5 MG, 1X/DAY
     Route: 048
  5. TOVIAZ [Suspect]
     Indication: POLLAKIURIA
     Dosage: 4 MG, UNK
     Route: 048
     Dates: start: 20120626
  6. OMEPRAZOLE [Concomitant]
     Indication: GASTROOESOPHAGEAL REFLUX DISEASE
     Dosage: 20 MG, DAILY
  7. TOVIAZ [Suspect]
     Indication: MICTURITION URGENCY
     Dosage: 8 MG, 1X/DAY
     Route: 048
     Dates: start: 20120614, end: 20120625
  8. GABAPENTIN [Concomitant]
     Indication: PAIN IN EXTREMITY
     Dosage: 300 MG, 2X/DAY
  9. NITROFURANTOIN [Concomitant]
     Indication: CYSTITIS
     Dosage: 100 MG, 2X/DAY

REACTIONS (11)
  - DIVERTICULITIS [None]
  - CONSTIPATION [None]
  - DRUG INTOLERANCE [None]
  - ABDOMINAL DISCOMFORT [None]
  - DRUG ADMINISTRATION ERROR [None]
  - SPEECH DISORDER [None]
  - CHOKING [None]
  - COUGH [None]
  - DRY MOUTH [None]
  - DRY THROAT [None]
  - NAUSEA [None]
